FAERS Safety Report 8311619-X (Version None)
Quarter: 2012Q2

REPORT INFORMATION
  Report Type: 
  Country: None (occurrence: None)
  Receive Date: 20120425
  Receipt Date: 20120417
  Transmission Date: 20120825
  Serious: Yes (Hospitalization, Other)
  Sender: FDA-Public Use
  Company Number: FR-ABBOTT-12P-056-0926874-00

PATIENT
  Sex: Male

DRUGS (7)
  1. METHOTREXATE [Suspect]
     Indication: PSORIATIC ARTHROPATHY
     Dates: end: 20111001
  2. DAIVOBET [Concomitant]
     Indication: PSORIASIS
     Dosage: 50 MCG/0.5MG/G
     Route: 061
  3. HUMIRA [Suspect]
     Indication: PSORIATIC ARTHROPATHY
     Route: 058
     Dates: start: 20090601, end: 20111018
  4. FOLIC ACID [Concomitant]
     Indication: PRODUCT USED FOR UNKNOWN INDICATION
     Route: 048
  5. METHOTREXATE [Suspect]
     Route: 048
     Dates: start: 20120405
  6. PARACETAMOL [Concomitant]
     Indication: PRODUCT USED FOR UNKNOWN INDICATION
     Route: 048
  7. LEVOTHYROXINE SODIUM [Concomitant]
     Indication: HYPOTHYROIDISM
     Route: 048
     Dates: start: 20100701

REACTIONS (9)
  - PSORIASIS [None]
  - PORTAL VEIN THROMBOSIS [None]
  - ABDOMINAL PAIN [None]
  - ABDOMINAL DISCOMFORT [None]
  - ABDOMINAL DISTENSION [None]
  - ILEUS [None]
  - DRUG INEFFECTIVE [None]
  - ULTRASOUND LIVER ABNORMAL [None]
  - MEGAKARYOCYTES ABNORMAL [None]
